FAERS Safety Report 8643635 (Version 2)
Quarter: 2012Q4

REPORT INFORMATION
  Report Type: 
  Country: FR (occurrence: FR)
  Receive Date: 20120629
  Receipt Date: 20121213
  Transmission Date: 20130627
  Serious: Yes (Other)
  Sender: FDA-Public Use
  Company Number: FR-PFIZER INC-2012154782

PATIENT
  Age: 60 Year
  Sex: Female

DRUGS (6)
  1. ARGANOVA [Suspect]
     Indication: HEPARIN-INDUCED THROMBOCYTOPENIA
     Dosage: 50 mg, daily
     Route: 042
     Dates: start: 20120601, end: 20120603
  2. SANDIMMUN [Interacting]
     Indication: HEART TRANSPLANT
     Dosage: 75 mg, 1x/day
     Route: 048
     Dates: start: 20120512, end: 20120602
  3. SANDIMMUN [Interacting]
     Dosage: 100 mg, 1x/day
     Route: 048
     Dates: start: 20120603, end: 20120603
  4. SANDIMMUN [Interacting]
     Dosage: 150 mg, 1x/day
     Route: 048
     Dates: start: 20120604, end: 20120604
  5. SANDIMMUN [Interacting]
     Dosage: 200 mg, 1x/day
     Route: 048
     Dates: start: 20120605, end: 20120605
  6. SANDIMMUN [Interacting]
     Dosage: 50 mg, 1x/day
     Route: 048

REACTIONS (2)
  - Drug level decreased [Recovered/Resolved]
  - Drug interaction [Recovered/Resolved]
